FAERS Safety Report 11023874 (Version 3)
Quarter: 2015Q2

REPORT INFORMATION
  Report Type: Spontaneous
  Country: US (occurrence: US)
  Receive Date: 20150413
  Receipt Date: 20150505
  Transmission Date: 20150821
  Serious: Yes (Hospitalization)
  Sender: FDA-Public Use
  Company Number: US-PFIZER INC-2015120913

PATIENT
  Age: 55 Year
  Sex: Female
  Weight: 41 kg

DRUGS (2)
  1. LYRICA [Suspect]
     Active Substance: PREGABALIN
     Indication: FIBROMYALGIA
     Dosage: 200 MG, 3X/DAY
     Route: 048
  2. LYRICA [Suspect]
     Active Substance: PREGABALIN
     Indication: NERVE INJURY

REACTIONS (5)
  - Intervertebral disc degeneration [Unknown]
  - Anxiety [Unknown]
  - Osteopenia [Unknown]
  - Inflammation [Unknown]
  - Influenza [Unknown]
